FAERS Safety Report 9931450 (Version 2)
Quarter: 2014Q1

REPORT INFORMATION
  Report Type: Spontaneous
  Country: NL (occurrence: NL)
  Receive Date: 20140228
  Receipt Date: 20140307
  Transmission Date: 20141002
  Serious: Yes (Hospitalization)
  Sender: FDA-Public Use
  Company Number: NL-ASTRAZENECA-2014SE12332

PATIENT
  Age: 65 Year
  Sex: Male

DRUGS (6)
  1. ESOMEPRAZOL [Suspect]
     Indication: ABDOMINAL DISCOMFORT
     Route: 048
     Dates: start: 20121015
  2. INSPRA [Concomitant]
     Route: 048
     Dates: start: 20131206
  3. VALSARTAN/HYDROCHLOORTHIAZIDE [Concomitant]
     Dosage: 80/12.5 MG 1 DF DAILY
     Route: 048
     Dates: start: 20131206
  4. EMCOR DECO [Concomitant]
     Route: 048
     Dates: start: 20131206
  5. TERAZOSINE [Concomitant]
     Route: 048
     Dates: start: 20131206
  6. RIZATRIPTAN [Concomitant]
     Route: 048
     Dates: start: 20131206

REACTIONS (2)
  - Arrhythmia [Recovered/Resolved]
  - Intentional drug misuse [Unknown]
